FAERS Safety Report 6964851-1 (Version None)
Quarter: 2010Q3

REPORT INFORMATION
  Report Type: 
  Country: None (occurrence: None)
  Receive Date: 20100901
  Receipt Date: 20100820
  Transmission Date: 20110219
  Serious: Yes (Disabling, Other)
  Sender: FDA-Public Use
  Company Number: ACO_01800_2010

PATIENT
  Age: 65 Year
  Sex: Female
  Weight: 62.5964 kg

DRUGS (5)
  1. AMPYRA [Suspect]
     Indication: GAIT DISTURBANCE
     Dosage: (10 MG BID ORAL)
     Route: 048
     Dates: start: 20100716
  2. COPAXONE [Concomitant]
  3. NEURONTIN [Concomitant]
  4. SKELAXIN [Concomitant]
  5. PHENAZOPYRIDINE HCL TAB [Concomitant]

REACTIONS (6)
  - BLADDER SPASM [None]
  - DYSURIA [None]
  - HEADACHE [None]
  - HOT FLUSH [None]
  - HYPERHIDROSIS [None]
  - INSOMNIA [None]
